FAERS Safety Report 8762222 (Version 3)
Quarter: 2012Q4

REPORT INFORMATION
  Report Type: 
  Country: GB (occurrence: GB)
  Receive Date: 20120830
  Receipt Date: 20120913
  Transmission Date: 20130627
  Serious: Yes (Other)
  Sender: FDA-Public Use
  Company Number: GB-ROCHE-1107664

PATIENT
  Age: 41 Year
  Sex: Male

DRUGS (2)
  1. LUCENTIS [Suspect]
     Indication: MACULAR OEDEMA
     Route: 050
  2. LUCENTIS [Suspect]
     Route: 050
     Dates: start: 20120628

REACTIONS (2)
  - Macular oedema [Unknown]
  - Disease progression [Unknown]
